FAERS Safety Report 15273879 (Version 2)
Quarter: 2018Q3

REPORT INFORMATION
  Report Type: Report from Study
  Country: US (occurrence: US)
  Receive Date: 20180813
  Receipt Date: 20180819
  Transmission Date: 20181010
  Serious: Yes (Death, Disabling, Other)
  Sender: FDA-Public Use
  Company Number: US-AMGEN-USACT2018111308

PATIENT
  Age: 49 Year
  Sex: Male
  Weight: 115.64 kg

DRUGS (7)
  1. EVOLOCUMAB [Suspect]
     Active Substance: EVOLOCUMAB
     Indication: DYSLIPIDAEMIA
     Dosage: 140 MG, Q2WK
     Route: 058
     Dates: start: 20160914
  2. ATORVASTATIN [Concomitant]
     Active Substance: ATORVASTATIN
     Indication: DYSLIPIDAEMIA
     Dosage: 40 MG, QD
     Dates: start: 20131223
  3. METOPROLOL. [Concomitant]
     Active Substance: METOPROLOL
     Dosage: 50 MG, UNK
     Dates: start: 20131223
  4. GABAPENTIN. [Concomitant]
     Active Substance: GABAPENTIN
     Dosage: 400 MG, BID
     Dates: start: 20150924
  5. CLOPIDOGREL [Concomitant]
     Active Substance: CLOPIDOGREL BISULFATE
     Dosage: 75 MG, QD
     Dates: start: 20131227
  6. PREFILLED AUTOINJECTOR/PEN [Suspect]
     Active Substance: DEVICE
     Indication: DYSLIPIDAEMIA
     Dosage: UNK
     Route: 058
     Dates: start: 20160914
  7. ASPIRIN. [Concomitant]
     Active Substance: ASPIRIN
     Dosage: 81 MG, UNK
     Dates: start: 20131223

REACTIONS (1)
  - Death [Fatal]

NARRATIVE: CASE EVENT DATE: 20180716
